FAERS Safety Report 13814633 (Version 1)
Quarter: 2017Q3

REPORT INFORMATION
  Report Type: Spontaneous
  Country: US (occurrence: US)
  Receive Date: 20170729
  Receipt Date: 20170729
  Transmission Date: 20171127
  Serious: Yes (Hospitalization)
  Sender: FDA-Public Use
  Company Number: None

PATIENT
  Age: 51 Year
  Sex: Male

DRUGS (1)
  1. ENOXAPARIN (GENERIC) [Suspect]
     Active Substance: ENOXAPARIN
     Indication: PULMONARY EMBOLISM
     Route: 058
     Dates: start: 20161112, end: 20170715

REACTIONS (3)
  - Duodenitis [None]
  - Upper gastrointestinal haemorrhage [None]
  - Small intestinal haemorrhage [None]

NARRATIVE: CASE EVENT DATE: 20170715
